FAERS Safety Report 22304841 (Version 7)
Quarter: 2024Q2

REPORT INFORMATION
  Report Type: Spontaneous
  Country: US (occurrence: US)
  Receive Date: 20230510
  Receipt Date: 20240503
  Transmission Date: 20240716
  Serious: No
  Sender: FDA-Public Use
  Company Number: US-PFIZER INC-PV202300079776

PATIENT
  Age: 71 Year
  Sex: Female

DRUGS (3)
  1. IBRANCE [Suspect]
     Active Substance: PALBOCICLIB
     Indication: Breast cancer female
     Dosage: 125 MG
  2. IBRANCE [Suspect]
     Active Substance: PALBOCICLIB
     Dosage: 125 MG, CYCLIC (ONCE DAILY WITH OR WITHOUT FOOD FOR 21 DAYS ON AND 7 DAYS OFF)
     Route: 048
     Dates: start: 20231102, end: 20231130
  3. FLONASE ALLERGY RELIEF [Concomitant]
     Active Substance: FLUTICASONE PROPIONATE
     Dosage: 1 P.O. TWICE A DAY (BID)
     Route: 048
     Dates: start: 20221221

REACTIONS (8)
  - Fatigue [Unknown]
  - Dyspnoea [Unknown]
  - Contusion [Unknown]
  - Chest discomfort [Unknown]
  - Platelet count abnormal [Unknown]
  - Illness [Unknown]
  - Product odour abnormal [Unknown]
  - Product dose omission in error [Unknown]
